FAERS Safety Report 20336598 (Version 1)
Quarter: 2022Q1

REPORT INFORMATION
  Report Type: Spontaneous
  Country: US (occurrence: US)
  Receive Date: 20220114
  Receipt Date: 20220114
  Transmission Date: 20220423
  Serious: No
  Sender: FDA-Public Use
  Company Number: US-PFIZER INC-202101340605

PATIENT
  Age: 76 Year
  Sex: Female
  Weight: 61.23 kg

DRUGS (1)
  1. CHANTIX [Suspect]
     Active Substance: VARENICLINE TARTRATE
     Dosage: 1 MG, 2X/DAY (1MG TABLET TWICE A DAY, ONCE IN MORNING AND ONCE IN EVENING  )

REACTIONS (4)
  - Nausea [Unknown]
  - Depression [Unknown]
  - Malaise [Unknown]
  - Abdominal discomfort [Unknown]
